FAERS Safety Report 16510551 (Version 2)
Quarter: 2019Q3

REPORT INFORMATION
  Report Type: Spontaneous
  Country: DE (occurrence: DE)
  Receive Date: 20190702
  Receipt Date: 20190702
  Transmission Date: 20191004
  Serious: Yes (Hospitalization, Other)
  Sender: FDA-Public Use
  Company Number: DE-EMCURE PHARMACEUTICALS LTD-2019-EPL-0244

PATIENT
  Age: 28 Year
  Sex: Female

DRUGS (5)
  1. SULPROSTONE [Concomitant]
     Active Substance: SULPROSTONE
     Indication: HAEMOSTASIS
  2. TRANEXAMIC ACID. [Suspect]
     Active Substance: TRANEXAMIC ACID
     Indication: HAEMOSTASIS
     Dosage: 2 GRAM
  3. PPSB [Concomitant]
     Indication: HAEMOSTASIS
     Dosage: 4000 IU
  4. FIBRINOGEN [Concomitant]
     Active Substance: FIBRINOGEN HUMAN
     Indication: HAEMOSTASIS
     Dosage: 4 GRAM
  5. OXYTOCIN. [Concomitant]
     Active Substance: OXYTOCIN
     Indication: HAEMOSTASIS

REACTIONS (3)
  - Renal cortical necrosis [Unknown]
  - Pleural effusion [Unknown]
  - Renal failure [Unknown]
